FAERS Safety Report 9459942 (Version 2)
Quarter: 2013Q3

REPORT INFORMATION
  Report Type: Spontaneous
  Country: US (occurrence: None)
  Receive Date: 20130812
  Receipt Date: 20130822
  Transmission Date: 20140515
  Serious: Yes (Death, Hospitalization, Other)
  Sender: FDA-Public Use
  Company Number: TPA2013A07532

PATIENT
  Age: 88 Year
  Sex: Female
  Weight: 78.47 kg

DRUGS (1)
  1. COLCRYS (COLCHICINE) [Suspect]
     Indication: GOUT
     Dosage: 2 IN 1 D
     Route: 048
     Dates: start: 2012

REACTIONS (6)
  - Intestinal obstruction [None]
  - Ankle fracture [None]
  - Pneumonia [None]
  - Myocardial infarction [None]
  - Clostridium difficile infection [None]
  - Weight decreased [None]
